FAERS Safety Report 20193458 (Version 1)
Quarter: 2021Q4

REPORT INFORMATION
  Report Type: Spontaneous
  Country: US (occurrence: None)
  Receive Date: 20211216
  Receipt Date: 20211216
  Transmission Date: 20220303
  Serious: Yes (Hospitalization)
  Sender: FDA-Public Use
  Company Number: US-Covis Pharma Europe B.V.-2021COV24868

PATIENT
  Sex: Male

DRUGS (1)
  1. ALVESCO [Suspect]
     Active Substance: CICLESONIDE
     Indication: Product used for unknown indication
     Dosage: ORAL, 2 PUFF 2X DAILY.
     Route: 055

REACTIONS (2)
  - Cardiac infection [Not Recovered/Not Resolved]
  - Product dose omission issue [Not Recovered/Not Resolved]
